FAERS Safety Report 6062805-3 (Version None)
Quarter: 2009Q1

REPORT INFORMATION
  Report Type: 
  Country: None (occurrence: None)
  Receive Date: 20090202
  Receipt Date: 20090202
  Transmission Date: 20090719
  Serious: No
  Sender: FDA-Public Use
  Company Number: None

PATIENT
  Age: 59 Year
  Sex: Male
  Weight: 82.5547 kg

DRUGS (1)
  1. MINOCYCLINE HCL [Suspect]
     Indication: ROSACEA
     Dates: start: 20081014, end: 20081015

REACTIONS (3)
  - BALANCE DISORDER [None]
  - DIZZINESS [None]
  - FEAR [None]
